FAERS Safety Report 17677735 (Version 3)
Quarter: 2020Q2

REPORT INFORMATION
  Report Type: Spontaneous
  Country: US (occurrence: US)
  Receive Date: 20200416
  Receipt Date: 20200514
  Transmission Date: 20200714
  Serious: Yes (Death, Hospitalization)
  Sender: FDA-Public Use
  Company Number: US-PFIZER INC-2020158157

PATIENT
  Age: 35 Year
  Sex: Female
  Weight: 77.56 kg

DRUGS (1)
  1. RAPAMUNE [Suspect]
     Active Substance: SIROLIMUS
     Indication: LUNG TRANSPLANT
     Dosage: 5 MG, DAILY (5 TABLETS DAILY)
     Route: 048

REACTIONS (4)
  - Respiratory failure [Fatal]
  - Product use in unapproved indication [Unknown]
  - Off label use [Unknown]
  - Bronchiolitis [Fatal]
